FAERS Safety Report 14201470 (Version 1)
Quarter: 2017Q4

REPORT INFORMATION
  Report Type: Spontaneous
  Country: US (occurrence: US)
  Receive Date: 20171117
  Receipt Date: 20171117
  Transmission Date: 20180321
  Serious: No
  Sender: FDA-Public Use
  Company Number: US-PERRIGO-17US024290

PATIENT
  Age: 35 Year
  Sex: Female
  Weight: 91.61 kg

DRUGS (3)
  1. COLACE [Concomitant]
     Active Substance: DOCUSATE SODIUM
     Indication: CONSTIPATION
     Dosage: UNK
     Route: 065
     Dates: start: 201705
  2. POLYETHYLENE GLYCOL 3350. [Suspect]
     Active Substance: POLYETHYLENE GLYCOL 3350
     Dosage: ONE HEAPING TEASPOONFUL, BID
     Route: 048
     Dates: start: 20170520, end: 201705
  3. POLYETHYLENE GLYCOL 3350. [Suspect]
     Active Substance: POLYETHYLENE GLYCOL 3350
     Indication: CONSTIPATION
     Dosage: ONE HEAPING TEASPOONFUL, BID, PRN
     Route: 048
     Dates: start: 2016, end: 2017

REACTIONS (4)
  - Underdose [Recovered/Resolved]
  - Drug effect decreased [Unknown]
  - Incorrect drug administration duration [Recovered/Resolved]
  - Inappropriate schedule of drug administration [Recovered/Resolved]

NARRATIVE: CASE EVENT DATE: 2016
